FAERS Safety Report 6894623-8 (Version None)
Quarter: 2010Q3

REPORT INFORMATION
  Report Type: 
  Country: None (occurrence: None)
  Receive Date: 20100802
  Receipt Date: 20100721
  Transmission Date: 20110219
  Serious: Yes (Other)
  Sender: FDA-Public Use
  Company Number: PHHO2010ES10979

PATIENT
  Sex: Male

DRUGS (3)
  1. NEORAL [Suspect]
     Indication: LIVER TRANSPLANT
     Dosage: 25 MG, BID
     Route: 048
     Dates: start: 20071226
  2. INTERFERON [Suspect]
     Indication: HEPATITIS C
     Dosage: 120 MCG / W
     Dates: start: 20090420
  3. UDC [Concomitant]
     Indication: CHOLESTASIS
     Dosage: UNK

REACTIONS (11)
  - BILE DUCT STONE [None]
  - BILIARY TRACT DISORDER [None]
  - CHOLANGITIS [None]
  - CHOLESTASIS [None]
  - ENDOSCOPY BILIARY TRACT [None]
  - JAUNDICE [None]
  - LIVER TRANSPLANT REJECTION [None]
  - NEPHROGENIC ANAEMIA [None]
  - PRURITUS [None]
  - RENAL FAILURE CHRONIC [None]
  - VANISHING BILE DUCT SYNDROME [None]
